FAERS Safety Report 4564011-8 (Version None)
Quarter: 2005Q1

REPORT INFORMATION
  Report Type: 
  Country: None (occurrence: None)
  Receive Date: 20050126
  Receipt Date: 20041229
  Transmission Date: 20050727
  Serious: Yes (Hospitalization)
  Sender: FDA-Public Use
  Company Number: DE_041214981

PATIENT
  Age: 50 Year
  Sex: Female
  Weight: 70.3075 kg

DRUGS (1)
  1. DULOXETINE HYDROCHLORIDE [Suspect]
     Indication: DEPRESSION
     Dosage: 60 MG
     Route: 048
     Dates: start: 20041216

REACTIONS (2)
  - FALL [None]
  - LOSS OF CONSCIOUSNESS [None]
